FAERS Safety Report 23978004 (Version 1)
Quarter: 2024Q2

REPORT INFORMATION
  Report Type: Spontaneous
  Country: US (occurrence: None)
  Receive Date: 20240614
  Receipt Date: 20240614
  Transmission Date: 20240716
  Serious: Yes (Hospitalization)
  Sender: FDA-Public Use
  Company Number: 2023A080214

PATIENT
  Age: 58 Year
  Sex: Female

DRUGS (3)
  1. SEROQUEL [Suspect]
     Active Substance: QUETIAPINE FUMARATE
     Indication: Bipolar disorder
     Route: 048
  2. METHOTREXATE [Concomitant]
     Active Substance: METHOTREXATE
  3. PREDNISONE [Concomitant]
     Active Substance: PREDNISONE

REACTIONS (2)
  - Overdose [Unknown]
  - Vision blurred [Unknown]

NARRATIVE: CASE EVENT DATE: 20210101
